FAERS Safety Report 19629260 (Version 2)
Quarter: 2021Q3

REPORT INFORMATION
  Report Type: Report from Study
  Country: FR (occurrence: FR)
  Receive Date: 20210728
  Receipt Date: 20210730
  Transmission Date: 20211014
  Serious: Yes (Death, Other)
  Sender: FDA-Public Use
  Company Number: FR-INCYTE CORPORATION-2021IN006514

PATIENT

DRUGS (32)
  1. VALACICLOVIR [Concomitant]
     Active Substance: VALACYCLOVIR HYDROCHLORIDE
     Indication: PRODUCT USED FOR UNKNOWN INDICATION
     Dosage: 2 DF, QD (2 DOSES OF 500 MG)
     Route: 065
  2. OLIGOSOL CUIVRE [Concomitant]
     Indication: IMMUNISATION
     Dosage: UNK
     Route: 065
     Dates: start: 2020, end: 202102
  3. ARGENT COLLOIDAL [Concomitant]
     Indication: IMMUNISATION
     Dosage: UNK
     Route: 065
     Dates: start: 2020, end: 202102
  4. GINSENG [PANAX GINSENG] [Concomitant]
     Indication: PRODUCT USED FOR UNKNOWN INDICATION
     Route: 065
  5. CAPSAICIN. [Concomitant]
     Active Substance: CAPSAICIN
     Indication: PRODUCT USED FOR UNKNOWN INDICATION
     Dosage: UNK
     Route: 065
  6. ALFALFA [MEDICAGO SATIVA] [Concomitant]
     Indication: PRODUCT USED FOR UNKNOWN INDICATION
     Dosage: UNK
     Route: 065
  7. EVENING PRIMROSE OIL [OENOTHERA BIENNIS OIL] [Concomitant]
     Indication: PRODUCT USED FOR UNKNOWN INDICATION
     Dosage: UNK
     Route: 065
  8. KARDEGIC [Concomitant]
     Active Substance: ASPIRIN DL-LYSINE
     Indication: PRODUCT USED FOR UNKNOWN INDICATION
     Dosage: 75 MG, QD
     Route: 065
  9. FEVERFEW [TANACETUM PARTHENIUM] [Concomitant]
     Active Substance: FEVERFEW\TANACETUM PARTHENIUM
     Indication: PRODUCT USED FOR UNKNOWN INDICATION
     Route: 065
  10. GINKGO BILOBA [Concomitant]
     Active Substance: GINKGO
     Indication: PRODUCT USED FOR UNKNOWN INDICATION
     Dosage: UNK
     Route: 065
  11. BOLDO LEAF [Concomitant]
     Active Substance: PEUMUS BOLDUS LEAF
     Indication: PRODUCT USED FOR UNKNOWN INDICATION
     Dosage: UNK
     Route: 065
  12. AGATHOSMA BETULINA [Concomitant]
     Indication: PRODUCT USED FOR UNKNOWN INDICATION
     Dosage: UNK
     Route: 065
  13. JAKAVI [Suspect]
     Active Substance: RUXOLITINIB
     Indication: JANUS KINASE 2 MUTATION
     Dosage: 10 MG DAILY
     Route: 048
     Dates: start: 20210208, end: 20210506
  14. RAMIPRIL. [Concomitant]
     Active Substance: RAMIPRIL
     Indication: PRODUCT USED FOR UNKNOWN INDICATION
     Dosage: 1.25 MG, QD
     Route: 065
  15. CORTANCYL [Concomitant]
     Active Substance: PREDNISONE
     Indication: PRODUCT USED FOR UNKNOWN INDICATION
     Dosage: 10 MG, QD
     Route: 065
  16. ARANESP [Concomitant]
     Active Substance: DARBEPOETIN ALFA
     Indication: MYELOFIBROSIS
     Dosage: UNK
     Route: 065
  17. PANAX GINSENG [Concomitant]
     Active Substance: ASIAN GINSENG
     Indication: PRODUCT USED FOR UNKNOWN INDICATION
     Dosage: UNK
     Route: 065
  18. HORSE?RADISH [Concomitant]
     Indication: PRODUCT USED FOR UNKNOWN INDICATION
     Dosage: UNK
     Route: 065
  19. KAVA [PIPER METHYSTICUM RHIZOME] [Concomitant]
     Indication: PRODUCT USED FOR UNKNOWN INDICATION
     Dosage: UNK
     Route: 065
  20. JAKAVI [Suspect]
     Active Substance: RUXOLITINIB
     Indication: PRIMARY MYELOFIBROSIS
     Dosage: 10 MG DAILY
     Route: 048
     Dates: start: 20200620, end: 20210111
  21. CHAMOMILE [MATRICARIA RECUTITA] [Concomitant]
     Indication: PRODUCT USED FOR UNKNOWN INDICATION
     Dosage: UNK
     Route: 065
  22. ECHINACEA ANGUSTIFOLIA [Concomitant]
     Active Substance: ECHINACEA ANGUSTIFOLIA
     Indication: PRODUCT USED FOR UNKNOWN INDICATION
     Dosage: UNK
     Route: 065
  23. GINGER ROOT [ZINGIBER OFFICINALE RHIZOME] [Concomitant]
     Indication: PRODUCT USED FOR UNKNOWN INDICATION
     Dosage: UNK
     Route: 065
  24. ARANESP [Concomitant]
     Active Substance: DARBEPOETIN ALFA
     Indication: JANUS KINASE 2 MUTATION
  25. CELERY [APIUM GRAVEOLENS] [Concomitant]
     Indication: PRODUCT USED FOR UNKNOWN INDICATION
     Dosage: UNK
     Route: 065
  26. CLOVE [SYZYGIUM AROMATICUM] [Concomitant]
     Indication: PRODUCT USED FOR UNKNOWN INDICATION
     Dosage: UNK
     Route: 065
  27. DONG QUAI COMPLEX [Concomitant]
     Indication: PRODUCT USED FOR UNKNOWN INDICATION
     Dosage: UNK
     Route: 065
  28. GOLDEN SEAL [HYDRASTIS CANADENSIS] [Concomitant]
     Indication: PRODUCT USED FOR UNKNOWN INDICATION
     Dosage: UNK
     Route: 065
  29. JAKAVI [Suspect]
     Active Substance: RUXOLITINIB
     Dosage: 5 MG DAILY
     Route: 048
     Dates: start: 20210507
  30. SIMVASTATINE [Concomitant]
     Active Substance: SIMVASTATIN
     Indication: PRODUCT USED FOR UNKNOWN INDICATION
     Dosage: 10 MG, QD
     Route: 065
  31. FENUGREEK [TRIGONELLA FOENUM?GRAECUM] [Concomitant]
     Active Substance: FENUGREEK LEAF\HERBALS
     Indication: PRODUCT USED FOR UNKNOWN INDICATION
     Dosage: UNK
     Route: 065
  32. LICORICE [GLYCYRRHIZA GLABRA] [Concomitant]
     Active Substance: GLYCYRRHIZA GLABRA\HERBALS
     Indication: PRODUCT USED FOR UNKNOWN INDICATION
     Dosage: UNK
     Route: 065

REACTIONS (20)
  - Asthenia [Unknown]
  - Cough [Unknown]
  - Anaemia [Not Recovered/Not Resolved]
  - Cerebral haemorrhage [Fatal]
  - Bicytopenia [Unknown]
  - Dyspnoea exertional [Unknown]
  - Cerebral ventricle collapse [Unknown]
  - Decreased appetite [Unknown]
  - Somnolence [Unknown]
  - Traumatic intracranial haemorrhage [Fatal]
  - Subdural haematoma [Fatal]
  - Pyrexia [Unknown]
  - Insomnia [Unknown]
  - General physical health deterioration [Fatal]
  - Disturbance in attention [Unknown]
  - Thrombocytopenia [Unknown]
  - Gait disturbance [Unknown]
  - Epistaxis [Unknown]
  - Fall [Fatal]
  - Presyncope [Unknown]

NARRATIVE: CASE EVENT DATE: 20210301
